FAERS Safety Report 10233653 (Version 1)
Quarter: 2014Q2

REPORT INFORMATION
  Report Type: Spontaneous
  Country: US (occurrence: US)
  Receive Date: 20140612
  Receipt Date: 20140612
  Transmission Date: 20141212
  Serious: Yes (Other)
  Sender: FDA-Public Use
  Company Number: US-ACTAVIS-2014-13035

PATIENT
  Age: 18 Month
  Sex: Male

DRUGS (2)
  1. TESTOSTERONE ENANTHATE (UNKNOWN) [Suspect]
     Indication: MICROPENIS
     Dosage: 25 MG, UNKNOWN AT 3.5 AND 4.5 MONTH
     Route: 030
  2. TESTOSTERONE ENANTHATE (UNKNOWN) [Suspect]
     Dosage: 50 MG, UNKNOWN
     Route: 030

REACTIONS (2)
  - Precocious puberty [Recovered/Resolved]
  - Aggression [Unknown]
